FAERS Safety Report 25730143 (Version 3)
Quarter: 2025Q3

REPORT INFORMATION
  Report Type: Spontaneous
  Country: EG (occurrence: EG)
  Receive Date: 20250827
  Receipt Date: 20250922
  Transmission Date: 20251021
  Serious: Yes (Hospitalization)
  Sender: BIOGEN
  Company Number: EG-BIOGEN-2025BI01311864

PATIENT
  Sex: Female
  Weight: 72 kg

DRUGS (9)
  1. TYSABRI [Suspect]
     Active Substance: NATALIZUMAB
     Indication: Multiple sclerosis
     Dosage: 300MG/15ML
     Route: 050
     Dates: start: 202303, end: 202506
  2. TYSABRI [Suspect]
     Active Substance: NATALIZUMAB
     Dosage: 300MG/15ML
     Route: 050
     Dates: start: 202306
  3. DELAREX [Concomitant]
     Indication: Hypersensitivity
     Route: 050
  4. LEVCET [Concomitant]
     Indication: Hypersensitivity
     Route: 050
  5. CORTISONE [Concomitant]
     Active Substance: CORTISONE
     Indication: Hypersensitivity
     Route: 050
  6. LORATADINE [Concomitant]
     Active Substance: LORATADINE
     Indication: Hypersensitivity
     Route: 050
  7. histazine 1 [Concomitant]
     Indication: Hypersensitivity
     Route: 050
  8. FEXOFENADINE [Concomitant]
     Active Substance: FEXOFENADINE HYDROCHLORIDE
     Indication: Hypersensitivity
     Route: 050
  9. LEVOTHYROXINE [Concomitant]
     Active Substance: LEVOTHYROXINE
     Indication: Thyroid hormone replacement therapy
     Route: 050

REACTIONS (7)
  - Thyroid cancer [Recovered/Resolved]
  - Lymphatic system neoplasm [Recovered/Resolved]
  - Hyperthyroidism [Not Recovered/Not Resolved]
  - Glucose tolerance impaired [Not Recovered/Not Resolved]
  - Haemoglobin abnormal [Unknown]
  - Blood thyroid stimulating hormone increased [Not Recovered/Not Resolved]
  - Hypersensitivity [Not Recovered/Not Resolved]

NARRATIVE: CASE EVENT DATE: 20250101
